FAERS Safety Report 6981847-4 (Version None)
Quarter: 2010Q3

REPORT INFORMATION
  Report Type: 
  Country: None (occurrence: None)
  Receive Date: 20100914
  Receipt Date: 20091116
  Transmission Date: 20110219
  Serious: No
  Sender: FDA-Public Use
  Company Number: US-PFIZER INC-2009268171

PATIENT
  Sex: Female

DRUGS (1)
  1. LYRICA [Suspect]
     Indication: PAIN IN EXTREMITY
     Dosage: 75 MG, 1X/DAY
     Route: 048
     Dates: start: 20090903, end: 20090906

REACTIONS (6)
  - ARTHRALGIA [None]
  - FEAR [None]
  - GAIT DISTURBANCE [None]
  - HYPERSOMNIA [None]
  - MUSCLE DISORDER [None]
  - PAIN IN EXTREMITY [None]
